FAERS Safety Report 15561660 (Version 9)
Quarter: 2021Q4

REPORT INFORMATION
  Report Type: Report from Study
  Country: JP (occurrence: JP)
  Receive Date: 20181029
  Receipt Date: 20211229
  Transmission Date: 20220303
  Serious: Yes (Other)
  Sender: FDA-Public Use
  Company Number: JP-GLAXOSMITHKLINE-JP2018JPN174444

PATIENT
  Age: 35 Year
  Sex: Female
  Weight: 60 kg

DRUGS (32)
  1. BELIMUMAB [Suspect]
     Active Substance: BELIMUMAB
     Indication: Systemic lupus erythematosus
     Dosage: 200 MG, WE
     Route: 058
     Dates: start: 20180904, end: 20180912
  2. BELIMUMAB [Suspect]
     Active Substance: BELIMUMAB
  3. BELIMUMAB [Suspect]
     Active Substance: BELIMUMAB
     Indication: Systemic lupus erythematosus
     Dosage: 200 MG, WE
     Route: 058
     Dates: start: 20181002, end: 20181106
  4. BELIMUMAB [Suspect]
     Active Substance: BELIMUMAB
     Dosage: 200 MG, WE
     Route: 058
     Dates: start: 20181120, end: 20181120
  5. BELIMUMAB [Suspect]
     Active Substance: BELIMUMAB
     Dosage: 200 MG, WE
     Route: 058
     Dates: start: 20190129, end: 20190218
  6. BELIMUMAB [Suspect]
     Active Substance: BELIMUMAB
     Dosage: 200 MG, ONCE IN EVERY 2 WEEKS
     Route: 058
     Dates: start: 20190225, end: 20190521
  7. XYZAL [Suspect]
     Active Substance: LEVOCETIRIZINE DIHYDROCHLORIDE
     Indication: Asthma prophylaxis
     Dosage: UNK
     Route: 048
  8. FLUTICASONE PROPIONATE\FORMOTEROL FUMARATE [Suspect]
     Active Substance: FLUTICASONE PROPIONATE\FORMOTEROL FUMARATE
     Indication: Asthma prophylaxis
     Dosage: 2 UNK, 1D
     Route: 055
  9. PROCATEROL HYDROCHLORIDE [Suspect]
     Active Substance: PROCATEROL HYDROCHLORIDE
     Indication: Asthma prophylaxis
     Dosage: UNK
     Route: 055
  10. PREDONINE [Suspect]
     Active Substance: PREDNISOLONE
     Indication: Systemic lupus erythematosus
     Dosage: 10 MG, 1D
     Route: 048
     Dates: start: 20180904, end: 20180929
  11. PREDONINE [Suspect]
     Active Substance: PREDNISOLONE
     Dosage: 5 MG, 1D
     Route: 048
     Dates: start: 20180930, end: 20181104
  12. PREDONINE [Suspect]
     Active Substance: PREDNISOLONE
     Dosage: 3 MG, 1D
     Route: 048
     Dates: start: 20181105, end: 20181202
  13. PREDONINE [Suspect]
     Active Substance: PREDNISOLONE
     Dosage: 2 MG, 1D
     Route: 048
     Dates: start: 20181203, end: 20190128
  14. PREDONINE [Suspect]
     Active Substance: PREDNISOLONE
     Dosage: 1 MG, 1D
     Route: 048
     Dates: start: 20190129
  15. NEXIUM [Concomitant]
     Active Substance: ESOMEPRAZOLE MAGNESIUM
     Indication: Gastrooesophageal reflux prophylaxis
     Dosage: UNK
  16. NEXIUM [Concomitant]
     Active Substance: ESOMEPRAZOLE MAGNESIUM
     Indication: Prophylaxis against gastrointestinal ulcer
  17. AIMIX COMBINATION TABLET [Concomitant]
     Indication: Hypertension
     Dosage: UNK
  18. ALFACALCIDOL [Concomitant]
     Active Substance: ALFACALCIDOL
     Indication: Osteoporosis prophylaxis
     Dosage: UNK
  19. TRAMADOL HYDROCHLORIDE [Concomitant]
     Active Substance: TRAMADOL HYDROCHLORIDE
     Indication: Systemic lupus erythematosus
     Dosage: UNK
  20. AMBROXOL HYDROCHLORIDE [Concomitant]
     Active Substance: AMBROXOL HYDROCHLORIDE
     Indication: Asthma prophylaxis
     Dosage: 45 MG, 1D
     Route: 048
  21. AMBROXOL HYDROCHLORIDE [Concomitant]
     Active Substance: AMBROXOL HYDROCHLORIDE
     Indication: Asthma
  22. VITANEURIN [Concomitant]
     Indication: Prophylaxis
     Dosage: UNK
  23. HIRUDOID LOTION [Concomitant]
     Indication: Dry skin prophylaxis
     Dosage: UNK
  24. POTASSIUM ASPARTATE [Concomitant]
     Active Substance: POTASSIUM ASPARTATE
     Indication: Hypokalaemia
     Dosage: UNK
  25. MONTELUKAST SODIUM [Concomitant]
     Active Substance: MONTELUKAST SODIUM
     Indication: Asthma prophylaxis
     Dosage: 10 MG, 1D
     Route: 048
     Dates: start: 20180904, end: 20180920
  26. CARBOCYSTEINE [Concomitant]
     Active Substance: CARBOCYSTEINE
     Indication: Asthma prophylaxis
     Dosage: UNK
  27. URSO [Concomitant]
     Active Substance: URSODIOL
     Indication: Antiviral prophylaxis
     Dosage: UNK
  28. LOXOPROFEN SODIUM DIHYDRATE [Concomitant]
     Active Substance: LOXOPROFEN SODIUM DIHYDRATE
     Indication: Systemic lupus erythematosus
     Dosage: UNK
  29. NIFEDIPINE [Concomitant]
     Active Substance: NIFEDIPINE
     Indication: Hypertension
     Dosage: 20 MG, 1D
     Route: 048
  30. SPIRONOLACTONE [Concomitant]
     Active Substance: SPIRONOLACTONE
     Indication: Hypertension
     Dosage: 12.5 MG, 1D
  31. PRIMPERAN TABLETS [Concomitant]
     Indication: Hyperemesis gravidarum
     Dosage: 15 MG, 1D
     Route: 048
     Dates: start: 20190618, end: 20190624
  32. CALONAL [Concomitant]
     Active Substance: ACETAMINOPHEN
     Indication: Hyperemesis gravidarum
     Dosage: 900 MG, 1D
     Route: 048
     Dates: start: 20190618, end: 20190702

REACTIONS (12)
  - Oesophageal candidiasis [Recovered/Resolved]
  - Laryngopharyngitis [Recovered/Resolved]
  - Viral upper respiratory tract infection [Recovered/Resolved]
  - Asthma [Recovered/Resolved]
  - Asthma [Recovered/Resolved]
  - Laryngopharyngitis [Recovered/Resolved]
  - Viral upper respiratory tract infection [Recovered/Resolved]
  - Gastrooesophageal reflux disease [Recovering/Resolving]
  - Exposure during pregnancy [Unknown]
  - Inappropriate schedule of product administration [Unknown]
  - Off label use [Unknown]
  - Live birth [Unknown]

NARRATIVE: CASE EVENT DATE: 20180918
